FAERS Safety Report 8363517-3 (Version None)
Quarter: 2012Q2

REPORT INFORMATION
  Report Type: 
  Country: None (occurrence: None)
  Receive Date: 20120516
  Receipt Date: 20120502
  Transmission Date: 20120825
  Serious: Yes (Hospitalization, Other)
  Sender: FDA-Public Use
  Company Number: US-MYLANLABS-2009AC000394

PATIENT
  Age: 63 Year
  Sex: Female
  Weight: 103.87 kg

DRUGS (35)
  1. AMITRIPTYLINE HCL [Concomitant]
  2. PRAMLINTIDE [Concomitant]
  3. CRESTOR [Concomitant]
  4. VALSARTAN [Concomitant]
  5. PLAVIX [Concomitant]
  6. FISH OIL [Concomitant]
  7. BIMATOPROST [Concomitant]
  8. DILTIAZEM [Concomitant]
  9. ASPIRIN [Concomitant]
  10. PRILOSEC [Concomitant]
  11. ISORDIL [Concomitant]
  12. DIOVAN [Concomitant]
  13. ZANTAC [Concomitant]
  14. GLYBURIDE [Concomitant]
  15. ISOSORBIDE DINITRATE [Concomitant]
  16. ALDACTONE [Concomitant]
  17. DIGOXIN [Suspect]
     Route: 048
     Dates: start: 19970215, end: 20080304
  18. NOVOLOG [Concomitant]
  19. HUMULIN N [Concomitant]
     Dosage: 80 UNITS EVERY EVENING
  20. OMEPRAZOLE [Concomitant]
  21. ELAVIL [Concomitant]
  22. NOVOLOG [Concomitant]
  23. SPIRONOLACTONE [Concomitant]
  24. AVANDIA [Concomitant]
  25. DEMADEX [Concomitant]
  26. ZOCOR [Concomitant]
  27. ATENOLOL [Concomitant]
  28. LANTUS [Concomitant]
  29. COUMADIN [Concomitant]
     Route: 048
  30. LOVENOX [Concomitant]
  31. ROCEPHIN [Concomitant]
  32. SYMLIN [Concomitant]
     Route: 058
  33. ZESTRIL [Concomitant]
  34. LASIX [Concomitant]
  35. CARDIZEM CD [Concomitant]

REACTIONS (85)
  - RENAL FAILURE CHRONIC [None]
  - CARDIAC VALVE DISEASE [None]
  - ARTHRALGIA [None]
  - CENTRAL OBESITY [None]
  - ELECTROCARDIOGRAM AMBULATORY ABNORMAL [None]
  - JUGULAR VEIN DISTENSION [None]
  - NAIL INFECTION [None]
  - NEUROPATHY PERIPHERAL [None]
  - OSTEOPENIA [None]
  - WHEEZING [None]
  - ECONOMIC PROBLEM [None]
  - FATIGUE [None]
  - DIZZINESS [None]
  - HYPERKALAEMIA [None]
  - RETINOPATHY [None]
  - SINUS TACHYCARDIA [None]
  - ARTERIOSCLEROSIS CORONARY ARTERY [None]
  - BACK PAIN [None]
  - ECHOCARDIOGRAM ABNORMAL [None]
  - NAUSEA [None]
  - OBESITY [None]
  - SINUS BRADYCARDIA [None]
  - ATRIAL FIBRILLATION [None]
  - ATRIAL FLUTTER [None]
  - CHEST PAIN [None]
  - OEDEMA PERIPHERAL [None]
  - ATRIOVENTRICULAR BLOCK FIRST DEGREE [None]
  - ELECTROCARDIOGRAM QT PROLONGED [None]
  - RENAL FAILURE ACUTE [None]
  - BREATH SOUNDS ABNORMAL [None]
  - CERVICOBRACHIAL SYNDROME [None]
  - CORONARY ARTERIAL STENT INSERTION [None]
  - INCREASED TENDENCY TO BRUISE [None]
  - NEPHROPATHY [None]
  - RHONCHI [None]
  - ILL-DEFINED DISORDER [None]
  - DYSPNOEA [None]
  - OEDEMA [None]
  - PAIN IN EXTREMITY [None]
  - HYPERTENSION [None]
  - PULMONARY HYPERTENSION [None]
  - HEART RATE IRREGULAR [None]
  - HYPOVOLAEMIA [None]
  - NAIL OPERATION [None]
  - TREATMENT NONCOMPLIANCE [None]
  - COUGH [None]
  - TOXICITY TO VARIOUS AGENTS [None]
  - ARTHRITIS [None]
  - CARDIAC PACEMAKER INSERTION [None]
  - CARDIAC STRESS TEST ABNORMAL [None]
  - CARDIOVERSION [None]
  - CHEST X-RAY ABNORMAL [None]
  - LOCAL SWELLING [None]
  - CORONARY ARTERY STENOSIS [None]
  - ABDOMINAL PAIN [None]
  - PALPITATIONS [None]
  - DIABETES MELLITUS INADEQUATE CONTROL [None]
  - PLEURAL EFFUSION [None]
  - CARDIOMEGALY [None]
  - DIARRHOEA [None]
  - HYPERGLYCAEMIA [None]
  - HYPERLIPIDAEMIA [None]
  - HYPOGLYCAEMIA [None]
  - HYPOMAGNESAEMIA [None]
  - MUSCLE SPASMS [None]
  - RALES [None]
  - INJURY [None]
  - NECK PAIN [None]
  - CHEST DISCOMFORT [None]
  - ORTHOPNOEA [None]
  - ANGINA PECTORIS [None]
  - CARDIAC FAILURE CONGESTIVE [None]
  - LEFT VENTRICULAR HYPERTROPHY [None]
  - ANGINA UNSTABLE [None]
  - DYSPNOEA EXERTIONAL [None]
  - EMPHYSEMA [None]
  - SICK SINUS SYNDROME [None]
  - VENTRICULAR EXTRASYSTOLES [None]
  - CORONARY ARTERY DISEASE [None]
  - ELECTROCARDIOGRAM ABNORMAL [None]
  - MITRAL VALVE INCOMPETENCE [None]
  - TACHYCARDIA [None]
  - ASTHENIA [None]
  - CHRONIC OBSTRUCTIVE PULMONARY DISEASE [None]
  - CORONARY ANGIOPLASTY [None]
